FAERS Safety Report 19613199 (Version 1)
Quarter: 2021Q3

REPORT INFORMATION
  Report Type: Spontaneous
  Country: US (occurrence: US)
  Receive Date: 20210726
  Receipt Date: 20210726
  Transmission Date: 20211014
  Serious: Yes (Other)
  Sender: FDA-Public Use
  Company Number: None

PATIENT
  Age: 52 Year
  Sex: Female
  Weight: 52 kg

DRUGS (7)
  1. KESIMPTA [Suspect]
     Active Substance: OFATUMUMAB
     Indication: MULTIPLE SCLEROSIS
     Dosage: ?          OTHER FREQUENCY:ONCE WEEKLY X3;?
     Route: 058
     Dates: start: 20210625
  2. HYDROMORPHONE [Concomitant]
     Active Substance: HYDROMORPHONE
  3. OXYCODONE?ACETAMINOPHEN [Concomitant]
     Active Substance: ACETAMINOPHEN\OXYCODONE HYDROCHLORIDE
  4. WARFARIN [Concomitant]
     Active Substance: WARFARIN
  5. BONIVA [Concomitant]
     Active Substance: IBANDRONATE SODIUM
  6. BISACODYL. [Concomitant]
     Active Substance: BISACODYL
  7. DALFAMPRIDINE. [Concomitant]
     Active Substance: DALFAMPRIDINE

REACTIONS (2)
  - Cerebrovascular accident [None]
  - Hypophagia [None]

NARRATIVE: CASE EVENT DATE: 20210711
